FAERS Safety Report 7270001-7 (Version None)
Quarter: 2011Q1

REPORT INFORMATION
  Report Type: 
  Country: None (occurrence: None)
  Receive Date: 20110202
  Receipt Date: 20110125
  Transmission Date: 20110831
  Serious: No
  Sender: FDA-Public Use
  Company Number: BR-ROCHE-755515

PATIENT
  Sex: Female
  Weight: 68 kg

DRUGS (2)
  1. ROACUTAN [Suspect]
     Indication: ACNE
     Route: 065
     Dates: start: 20101201, end: 20110107
  2. DIANE [Concomitant]
     Indication: CONTRACEPTION

REACTIONS (2)
  - NO ADVERSE EVENT [None]
  - PREGNANCY [None]
